FAERS Safety Report 6428025-5 (Version None)
Quarter: 2009Q4

REPORT INFORMATION
  Report Type: 
  Country: None (occurrence: None)
  Receive Date: 20091105
  Receipt Date: 20091102
  Transmission Date: 20100525
  Serious: Yes (Death, Life-Threatening, Hospitalization, Other)
  Sender: FDA-Public Use
  Company Number: FR-BRISTOL-MYERS SQUIBB COMPANY-14840797

PATIENT
  Age: 76 Year
  Sex: Female

DRUGS (4)
  1. COUMADIN [Suspect]
     Indication: ANTICOAGULANT THERAPY
     Route: 048
     Dates: end: 20090126
  2. CALCIPARINE [Suspect]
     Dosage: INTERRUPTED ON 04FEB09 AND RESTARTED ON 06FEB2009
     Route: 058
     Dates: start: 20090126
  3. CERIS [Concomitant]
     Dosage: ONE TABLET TWICE A DAY
     Route: 048
     Dates: end: 20090122
  4. CORDARONE [Concomitant]
     Dosage: ONE INTAKE
     Route: 048

REACTIONS (6)
  - ANAEMIA [None]
  - HAEMATOMA [None]
  - MULTI-ORGAN FAILURE [None]
  - PNEUMONIA [None]
  - RECTAL HAEMORRHAGE [None]
  - SHOCK HAEMORRHAGIC [None]
